FAERS Safety Report 4904570-6 (Version None)
Quarter: 2006Q1

REPORT INFORMATION
  Report Type: 
  Country: None (occurrence: None)
  Receive Date: 20060208
  Receipt Date: 20051223
  Transmission Date: 20060701
  Serious: Yes (Hospitalization)
  Sender: FDA-Public Use
  Company Number: DE-ROCHE-429842

PATIENT
  Age: 21 Year
  Sex: Male

DRUGS (30)
  1. BLINDED DACLIZUMAB [Suspect]
     Dosage: TAKEN ON DAY 0 PRE-OPERATELY. FOUR MORE DOSES TAKEN ON DAY 8, 22A?1, 36A?1 AND 50A?1.
     Route: 042
     Dates: start: 20050818, end: 20051010
  2. MYCOPHENOLATE MOFETIL [Suspect]
     Route: 042
     Dates: start: 20050819, end: 20050819
  3. MYCOPHENOLATE MOFETIL [Suspect]
     Route: 042
     Dates: start: 20050820, end: 20050821
  4. MYCOPHENOLATE MOFETIL [Suspect]
     Route: 048
     Dates: start: 20050821, end: 20051219
  5. MYCOPHENOLATE MOFETIL [Suspect]
     Route: 048
     Dates: start: 20051220
  6. CYCLOSPORINE [Suspect]
     Route: 042
     Dates: start: 20050819, end: 20050821
  7. CYCLOSPORINE [Suspect]
     Dosage: TAPERED DAILY DOSE.
     Route: 048
     Dates: start: 20050822
  8. URBASON [Suspect]
     Route: 048
     Dates: start: 20050818, end: 20050818
  9. URBASON [Suspect]
     Route: 048
     Dates: start: 20050819, end: 20050819
  10. URBASON [Suspect]
     Route: 048
     Dates: end: 20051215
  11. URBASON [Suspect]
     Route: 048
     Dates: start: 20051215
  12. ACETYLCYSTEINE [Concomitant]
     Dates: start: 20050819
  13. VALGANCICLOVIR [Concomitant]
     Dates: start: 20050823
  14. VORICONAZOL [Concomitant]
     Dates: start: 20050819
  15. COTRIM [Concomitant]
     Dates: start: 20050826
  16. MAGNESIUM [Concomitant]
     Dates: start: 20050823
  17. CALCIUM GLUCONATE [Concomitant]
     Dates: start: 20050823
  18. VIGANTOLETTEN [Concomitant]
     Dates: start: 20050824
  19. RANITIDINE HCL [Concomitant]
     Dates: start: 20050818
  20. KREON [Concomitant]
     Dates: start: 20050823
  21. URSODESOXYCHOLIC ACID [Concomitant]
     Dosage: REPORTED AS URSODEOXYCHOLSAURE.
     Dates: start: 20050823
  22. SIMETHICON [Concomitant]
     Dates: start: 20050902
  23. EISEN(II)-GLYCIN-SULFAT-KOMPLEX [Concomitant]
     Dates: start: 20050824
  24. AMPHO MORONAL [Concomitant]
     Dates: start: 20050818
  25. PHYTOMENADION [Concomitant]
     Dosage: 10 MG EVERY WEEK.
     Dates: start: 20050824
  26. ALENDRONSAEURE [Concomitant]
     Dosage: 70 MG EVERY WEEK.
     Dates: start: 20050824
  27. SALBUTAMOL [Concomitant]
     Dates: start: 20050818, end: 20060102
  28. COLISTIN [Concomitant]
     Dates: start: 20050819
  29. ACYCLOVIR [Concomitant]
     Dates: start: 20051024, end: 20051213
  30. METOPROLOL [Concomitant]
     Dates: start: 20051018

REACTIONS (1)
  - CYTOMEGALOVIRUS INFECTION [None]
